FAERS Safety Report 8111686-2 (Version None)
Quarter: 2012Q1

REPORT INFORMATION
  Report Type: 
  Country: None (occurrence: None)
  Receive Date: 20120202
  Receipt Date: 20120202
  Transmission Date: 20120608
  Serious: Yes (Other)
  Sender: FDA-Public Use
  Company Number: None

PATIENT
  Sex: Female
  Weight: 72 kg

DRUGS (1)
  1. LEVETIRACETAM [Suspect]
     Indication: CONVULSION
     Dosage: 500MGS DAILY ORAL
     Route: 048
     Dates: start: 20111215, end: 20120125

REACTIONS (2)
  - DEVELOPMENTAL DELAY [None]
  - SKIN DISORDER [None]
